FAERS Safety Report 15349702 (Version 1)
Quarter: 2018Q3

REPORT INFORMATION
  Report Type: Spontaneous
  Country: US (occurrence: US)
  Receive Date: 20180904
  Receipt Date: 20180904
  Transmission Date: 20181010
  Serious: Yes (Other)
  Sender: FDA-Public Use
  Company Number: US-NOVOPROD-618299

PATIENT
  Age: 52 Year
  Sex: Male
  Weight: 104.31 kg

DRUGS (1)
  1. NOVOLOG [Suspect]
     Active Substance: INSULIN ASPART
     Indication: TYPE 2 DIABETES MELLITUS
     Dosage: MAXIMUM OF 100 UNITS DAILY
     Route: 058

REACTIONS (6)
  - Blood glucose increased [Unknown]
  - Renal failure [Unknown]
  - Cardiac valve disease [Unknown]
  - Hypertension [Unknown]
  - Neuropathy peripheral [Unknown]
  - Cardiac failure congestive [Unknown]

NARRATIVE: CASE EVENT DATE: 1999
